FAERS Safety Report 6341371-9 (Version None)
Quarter: 2009Q3

REPORT INFORMATION
  Report Type: 
  Country: None (occurrence: None)
  Receive Date: 20090901
  Receipt Date: 20090901
  Transmission Date: 20100115
  Serious: No
  Sender: FDA-Public Use
  Company Number: None

PATIENT
  Age: 79 Year
  Sex: Female

DRUGS (1)
  1. LEVOXYL 100 MCG KING [Suspect]
     Indication: HYPOTHYROIDISM
     Dosage: 1 TABLET DAILY (BY MOUTH)
     Route: 048
     Dates: start: 20090318, end: 20090702

REACTIONS (2)
  - PRODUCT SOLUBILITY ABNORMAL [None]
  - PRODUCT TASTE ABNORMAL [None]
